FAERS Safety Report 13736309 (Version 1)
Quarter: 2017Q3

REPORT INFORMATION
  Report Type: Spontaneous
  Country: US (occurrence: US)
  Receive Date: 20170710
  Receipt Date: 20170710
  Transmission Date: 20171127
  Serious: Yes (Hospitalization)
  Sender: FDA-Public Use
  Company Number: None

PATIENT
  Age: 57 Year
  Sex: Male
  Weight: 118 kg

DRUGS (1)
  1. DABIGATRAN 150MG BID BOEHRINGER INGELHEIM [Suspect]
     Active Substance: DABIGATRAN

REACTIONS (5)
  - Drug dose omission [None]
  - Venous thrombosis [None]
  - Drug ineffective [None]
  - Medical device site thrombosis [None]
  - Thrombosis [None]

NARRATIVE: CASE EVENT DATE: 20170623
